FAERS Safety Report 13579677 (Version 1)
Quarter: 2017Q2

REPORT INFORMATION
  Report Type: Report from Study
  Country: US (occurrence: US)
  Receive Date: 20170525
  Receipt Date: 20170525
  Transmission Date: 20170830
  Serious: Yes (Other)
  Sender: FDA-Public Use
  Company Number: US-ROCHE-1938909

PATIENT
  Age: 14 Year
  Sex: Female
  Weight: 98.06 kg

DRUGS (2)
  1. EPIPEN [Concomitant]
     Active Substance: EPINEPHRINE
  2. XOLAIR [Suspect]
     Active Substance: OMALIZUMAB
     Indication: ASTHMA
     Dosage: SHOT
     Route: 065
     Dates: start: 20170519

REACTIONS (4)
  - Eye swelling [Recovering/Resolving]
  - Cough [Recovering/Resolving]
  - Pruritus generalised [Recovering/Resolving]
  - Blood immunoglobulin E increased [Not Recovered/Not Resolved]

NARRATIVE: CASE EVENT DATE: 20170519
